FAERS Safety Report 15878704 (Version 4)
Quarter: 2019Q1

REPORT INFORMATION
  Report Type: Spontaneous
  Country: US (occurrence: US)
  Receive Date: 20190128
  Receipt Date: 20190326
  Transmission Date: 20190417
  Serious: No
  Sender: FDA-Public Use
  Company Number: US-PFIZER INC-2018530988

PATIENT
  Age: 58 Year
  Sex: Female

DRUGS (4)
  1. SOMAVERT [Suspect]
     Active Substance: PEGVISOMANT
     Dosage: 20 MG, DAILY
     Route: 058
     Dates: start: 20190104, end: 20190107
  2. SOMAVERT [Suspect]
     Active Substance: PEGVISOMANT
     Dosage: 20 MG, DAILY
     Route: 058
     Dates: start: 201901
  3. SOMAVERT [Suspect]
     Active Substance: PEGVISOMANT
     Indication: ACROMEGALY
     Dosage: 20 MG, TWICE WEEKLY
  4. SOMAVERT [Suspect]
     Active Substance: PEGVISOMANT
     Dosage: 20 MG, TWICE WEEKLY
     Dates: start: 20190104

REACTIONS (6)
  - Product use issue [Unknown]
  - Injection site reaction [Recovered/Resolved]
  - Injection site hypersensitivity [Recovered/Resolved]
  - Injection site erythema [Recovered/Resolved]
  - Intentional product misuse [Unknown]
  - Injection site pruritus [Recovered/Resolved]
